FAERS Safety Report 6040936-1 (Version None)
Quarter: 2009Q1

REPORT INFORMATION
  Report Type: 
  Country: None (occurrence: None)
  Receive Date: 20090116
  Receipt Date: 20080707
  Transmission Date: 20090719
  Serious: Yes (Other)
  Sender: FDA-Public Use
  Company Number: US-BRISTOL-MYERS SQUIBB COMPANY-14248108

PATIENT
  Age: 48 Year
  Sex: Female

DRUGS (9)
  1. ABILIFY [Suspect]
     Indication: MAJOR DEPRESSION
     Dosage: REDUCED TO 2.5 MG ON 08-APR-2008.
     Dates: start: 20051004
  2. ABILIFY [Suspect]
     Indication: PSYCHOTIC DISORDER
     Dosage: REDUCED TO 2.5 MG ON 08-APR-2008.
     Dates: start: 20051004
  3. GEODON [Suspect]
     Dates: start: 20080408, end: 20080506
  4. TRI-CHLOR [Concomitant]
  5. EFFEXOR [Concomitant]
  6. WELLBUTRIN XL [Concomitant]
  7. CHANTIX [Concomitant]
     Dates: start: 20070901, end: 20071201
  8. LEXAPRO [Concomitant]
     Dates: start: 20051004, end: 20070104
  9. VALIUM [Concomitant]
     Dates: end: 20050101

REACTIONS (3)
  - LIPIDS ABNORMAL [None]
  - TYPE 2 DIABETES MELLITUS [None]
  - WEIGHT INCREASED [None]
